FAERS Safety Report 6135626-0 (Version None)
Quarter: 2009Q1

REPORT INFORMATION
  Report Type: 
  Country: None (occurrence: None)
  Receive Date: 20090327
  Receipt Date: 20080303
  Transmission Date: 20090719
  Serious: Yes (Other)
  Sender: FDA-Public Use
  Company Number: US-ASTRAZENECA-2008UW04236

PATIENT
  Age: 78 Year
  Sex: Male
  Weight: 81.2 kg

DRUGS (7)
  1. ZESTRIL [Suspect]
     Route: 048
     Dates: start: 20080114, end: 20080225
  2. ARTHROTEC [Concomitant]
     Dates: end: 20080109
  3. ADVAIR HFA [Concomitant]
  4. LIPITOR [Concomitant]
  5. NEXIUM [Concomitant]
     Route: 048
  6. ASPIRIN [Concomitant]
  7. PLAVIX [Concomitant]

REACTIONS (7)
  - COUGH [None]
  - DYSPHONIA [None]
  - FATIGUE [None]
  - HEART RATE DECREASED [None]
  - MENTAL IMPAIRMENT [None]
  - SLEEP APNOEA SYNDROME [None]
  - VENTRICULAR EXTRASYSTOLES [None]
